FAERS Safety Report 9011161 (Version 1)
Quarter: 2013Q1

REPORT INFORMATION
  Report Type: Spontaneous
  Country: US (occurrence: US)
  Receive Date: 20130109
  Receipt Date: 20130109
  Transmission Date: 20140127
  Serious: Yes (Other)
  Sender: FDA-Public Use
  Company Number: US-PFIZER INC-2013008375

PATIENT
  Age: 42 Year
  Sex: Male
  Weight: 90.7 kg

DRUGS (8)
  1. LYRICA [Suspect]
     Dosage: UNK
     Dates: end: 201212
  2. GABAPENTIN [Suspect]
     Indication: NEURALGIA
     Dosage: UNK
     Route: 048
  3. GABAPENTIN [Suspect]
     Indication: NEURALGIA
     Dosage: THREE CAPSULES OF 300MG, 3X/DAY
     Route: 048
     Dates: start: 201212, end: 201212
  4. GABAPENTIN [Suspect]
     Indication: NEURALGIA
  5. GABAPENTIN [Suspect]
     Indication: NEURALGIA
     Dosage: 1200 MG, 3X/DAY
     Route: 048
     Dates: start: 201212
  6. GABAPENTIN [Suspect]
     Indication: NEURALGIA
  7. GABAPENTIN [Suspect]
     Indication: NEURALGIA
  8. NORTRIPTYLINE [Concomitant]
     Dosage: 75 MG, 1X/DAY

REACTIONS (4)
  - Viral infection [Unknown]
  - Drug ineffective [Unknown]
  - Abdominal discomfort [Unknown]
  - Malaise [Not Recovered/Not Resolved]
